FAERS Safety Report 20862705 (Version 3)
Quarter: 2022Q2

REPORT INFORMATION
  Report Type: Spontaneous
  Country: US (occurrence: US)
  Receive Date: 20220523
  Receipt Date: 20220610
  Transmission Date: 20220721
  Serious: Yes (Other)
  Sender: FDA-Public Use
  Company Number: US-ALLERGAN-2216664US

PATIENT
  Sex: Male

DRUGS (9)
  1. VUITY [Suspect]
     Active Substance: PILOCARPINE HYDROCHLORIDE
     Indication: Presbyopia
     Dosage: 1 DF, QD
     Route: 047
     Dates: start: 20220311, end: 20220321
  2. FLUOXETINE HYDROCHLORIDE [Concomitant]
     Active Substance: FLUOXETINE HYDROCHLORIDE
  3. BUSPAR [Concomitant]
     Active Substance: BUSPIRONE HYDROCHLORIDE
  4. OLANZAPINE [Concomitant]
     Active Substance: OLANZAPINE
  5. EFFEXOR [Concomitant]
     Active Substance: VENLAFAXINE HYDROCHLORIDE
  6. OXYCODONE [Concomitant]
     Active Substance: OXYCODONE
  7. METHOTREXATE [Concomitant]
     Active Substance: METHOTREXATE
  8. XANAX [Concomitant]
     Active Substance: ALPRAZOLAM
  9. ELIQUIS [Concomitant]
     Active Substance: APIXABAN

REACTIONS (2)
  - Retinal detachment [Recovered/Resolved]
  - Blindness [Unknown]

NARRATIVE: CASE EVENT DATE: 20220321
